FAERS Safety Report 6121148-X (Version None)
Quarter: 2009Q1

REPORT INFORMATION
  Report Type: 
  Country: None (occurrence: None)
  Receive Date: 20090317
  Receipt Date: 20090306
  Transmission Date: 20090719
  Serious: Yes (Hospitalization)
  Sender: FDA-Public Use
  Company Number: A0773335A

PATIENT
  Age: 39 Year
  Sex: Female
  Weight: 109.1 kg

DRUGS (15)
  1. AVANDIA [Suspect]
     Indication: DIABETES MELLITUS
     Dosage: 4MG PER DAY
     Route: 048
     Dates: start: 20031125, end: 20070601
  2. PREDNISONE [Concomitant]
  3. METOPROLOL TARTRATE [Concomitant]
  4. LABETALOL HCL [Concomitant]
  5. LOVASTATIN [Concomitant]
  6. CELLCEPT [Concomitant]
  7. FOSAMAX [Concomitant]
  8. MYFORTIC [Concomitant]
  9. AVAPRO [Concomitant]
  10. TRIAMCINOLONE [Concomitant]
  11. NIFEDIPINE [Concomitant]
  12. CARTIA XT [Concomitant]
  13. POTASSIUM CHLORIDE [Concomitant]
  14. LOVASTATIN [Concomitant]
  15. COZAAR [Concomitant]

REACTIONS (2)
  - CARDIAC FAILURE CONGESTIVE [None]
  - CARDIAC VALVE DISEASE [None]
